FAERS Safety Report 6638494-3 (Version None)
Quarter: 2010Q1

REPORT INFORMATION
  Report Type: 
  Country: None (occurrence: None)
  Receive Date: 20100317
  Receipt Date: 20100312
  Transmission Date: 20100710
  Serious: Yes (Death)
  Sender: FDA-Public Use
  Company Number: US-SANOFI-AVENTIS-2009SA007249

PATIENT
  Sex: Male

DRUGS (11)
  1. GLIMEPIRIDE [Suspect]
     Route: 048
     Dates: start: 20090901, end: 20091116
  2. GLIMEPIRIDE [Suspect]
     Indication: DIABETES MELLITUS MANAGEMENT
     Route: 048
     Dates: start: 20090901, end: 20091116
  3. GLIMEPIRIDE [Suspect]
     Route: 048
     Dates: start: 20091121
  4. GLIMEPIRIDE [Suspect]
     Route: 048
     Dates: start: 20091121
  5. COUMADIN [Concomitant]
     Route: 065
  6. LANOXIN [Concomitant]
  7. ACCUPRIL [Concomitant]
  8. METOPROLOL TARTRATE [Concomitant]
  9. METFORMIN HYDROCHLORIDE [Concomitant]
  10. ALLOPURINOL [Concomitant]
  11. FUROSEMIDE [Concomitant]

REACTIONS (4)
  - DECREASED APPETITE [None]
  - HEPATIC CANCER STAGE IV [None]
  - PALLOR [None]
  - YELLOW SKIN [None]
